FAERS Safety Report 6679859-3 (Version None)
Quarter: 2010Q2

REPORT INFORMATION
  Report Type: 
  Country: None (occurrence: None)
  Receive Date: 20100409
  Receipt Date: 20100325
  Transmission Date: 20101027
  Serious: Yes (Death)
  Sender: FDA-Public Use
  Company Number: AE 2010-054

PATIENT
  Age: 92 Year
  Sex: Female

DRUGS (1)
  1. FAZACLO ODT [Suspect]
     Dosage: 25MG DAILY PO
     Route: 048
     Dates: start: 20090115, end: 20100325

REACTIONS (2)
  - ATELECTASIS [None]
  - INFLUENZA LIKE ILLNESS [None]
